FAERS Safety Report 17356265 (Version 1)
Quarter: 2020Q1

REPORT INFORMATION
  Report Type: Report from Study
  Country: FR (occurrence: FR)
  Receive Date: 20200131
  Receipt Date: 20200131
  Transmission Date: 20200409
  Serious: Yes (Other)
  Sender: FDA-Public Use
  Company Number: NVSC2020FR025704

PATIENT

DRUGS (1)
  1. EXJADE [Suspect]
     Active Substance: DEFERASIROX
     Indication: ACUTE MYELOID LEUKAEMIA
     Route: 065

REACTIONS (5)
  - Hepatocellular injury [Not Recovered/Not Resolved]
  - Cholestasis [Not Recovered/Not Resolved]
  - Nausea [Recovered/Resolved with Sequelae]
  - Sinusitis [Recovered/Resolved with Sequelae]
  - Influenza [Recovered/Resolved with Sequelae]

NARRATIVE: CASE EVENT DATE: 20161220
